FAERS Safety Report 15451548 (Version 2)
Quarter: 2018Q4

REPORT INFORMATION
  Report Type: Spontaneous
  Country: DE (occurrence: DE)
  Receive Date: 20181001
  Receipt Date: 20181012
  Transmission Date: 20190204
  Serious: Yes (Death, Other)
  Sender: FDA-Public Use
  Company Number: PHHY2018DE110707

PATIENT
  Age: 76 Year
  Sex: Female

DRUGS (16)
  1. VENLAFAXINE [Suspect]
     Active Substance: VENLAFAXINE HYDROCHLORIDE
     Dosage: 75 MG, UNK
     Route: 065
  2. PRADAXA [Suspect]
     Active Substance: DABIGATRAN ETEXILATE MESYLATE
     Indication: DEEP VEIN THROMBOSIS
     Dosage: UNK
     Route: 048
  3. PREDNISOLONE. [Concomitant]
     Active Substance: PREDNISOLONE
     Indication: PRODUCT USED FOR UNKNOWN INDICATION
     Dosage: 5 MG, UNK
     Route: 065
  4. VENLAFAXINE [Suspect]
     Active Substance: VENLAFAXINE HYDROCHLORIDE
     Indication: ANTIDEPRESSANT THERAPY
     Dosage: 37.5 MG, UNK
     Route: 065
  5. LORAZEPAM. [Suspect]
     Active Substance: LORAZEPAM
     Indication: DEPRESSION
     Dosage: 0.75 MG, UNK
     Route: 065
  6. COLECALCIFEROL [Concomitant]
     Active Substance: CHOLECALCIFEROL
     Indication: PRODUCT USED FOR UNKNOWN INDICATION
     Dosage: UNK (ONCE/WEEK)
     Route: 065
  7. OLANZAPINE. [Suspect]
     Active Substance: OLANZAPINE
     Dosage: 2.5 UNK, UNK (AT NIGHT)
     Route: 065
  8. LORAZEPAM. [Suspect]
     Active Substance: LORAZEPAM
     Dosage: 1 MG, UNK
     Route: 065
  9. METHOTREXATE. [Concomitant]
     Active Substance: METHOTREXATE
     Indication: RHEUMATOID ARTHRITIS
     Dosage: 15 MG, UNK
     Route: 065
  10. OLANZAPINE. [Suspect]
     Active Substance: OLANZAPINE
     Indication: INSOMNIA
     Dosage: 5 MG, UNK (AT NIGHT)
     Route: 065
  11. LORAZEPAM. [Suspect]
     Active Substance: LORAZEPAM
     Dosage: 0.25 MG, UNK
     Route: 065
  12. PANTOPRAZOLE [Concomitant]
     Active Substance: PANTOPRAZOLE
     Indication: PRODUCT USED FOR UNKNOWN INDICATION
     Route: 065
  13. VENLAFAXINE [Suspect]
     Active Substance: VENLAFAXINE HYDROCHLORIDE
     Dosage: 112.5 MG, UNK
     Route: 065
  14. CALCIUM [Concomitant]
     Active Substance: CALCIUM
     Indication: PRODUCT USED FOR UNKNOWN INDICATION
     Dosage: 500 MG, UNK
     Route: 065
  15. LORAZEPAM. [Suspect]
     Active Substance: LORAZEPAM
     Dosage: 0.5 UNK, UNK
     Route: 065
  16. FESOTERODINE [Concomitant]
     Active Substance: FESOTERODINE
     Indication: PRODUCT USED FOR UNKNOWN INDICATION
     Dosage: 8 MG, UNK
     Route: 065

REACTIONS (1)
  - Seizure [Fatal]
